FAERS Safety Report 23997409 (Version 1)
Quarter: 2024Q2

REPORT INFORMATION
  Report Type: Spontaneous
  Country: US (occurrence: US)
  Receive Date: 20240621
  Receipt Date: 20240621
  Transmission Date: 20240716
  Serious: Yes (Hospitalization)
  Sender: FDA-Public Use
  Company Number: US-BRAEBURN-US-BRA-24-000257

PATIENT
  Sex: Male

DRUGS (2)
  1. BRIXADI [Suspect]
     Active Substance: BUPRENORPHINE
     Indication: Drug dependence
     Dosage: 96 MILLIGRAM, MONTHLY
     Dates: start: 20240320, end: 20240320
  2. SUBLOCADE [Concomitant]
     Active Substance: BUPRENORPHINE
     Indication: Product used for unknown indication
     Route: 065

REACTIONS (5)
  - Vomiting [Recovered/Resolved]
  - Nausea [Recovering/Resolving]
  - Dehydration [Unknown]
  - Decreased appetite [Unknown]
  - Withdrawal syndrome [Unknown]

NARRATIVE: CASE EVENT DATE: 20240320
